FAERS Safety Report 7565544-2 (Version None)
Quarter: 2011Q2

REPORT INFORMATION
  Report Type: 
  Country: None (occurrence: None)
  Receive Date: 20110623
  Receipt Date: 20110608
  Transmission Date: 20111010
  Serious: Yes (Hospitalization)
  Sender: FDA-Public Use
  Company Number: US-SHIRE-SPV1-2009-01534

PATIENT
  Sex: Male
  Weight: 30.4 kg

DRUGS (3)
  1. IDURSULFASE [Suspect]
     Indication: MUCOPOLYSACCHARIDOSIS II
     Dosage: 0.5 MG/KG, 1X/WEEK
     Route: 041
     Dates: start: 20061005
  2. PREDNISOLONE [Suspect]
     Indication: PREMEDICATION
     Dosage: 30 UNK, OTHER(FOUR TIMES)
     Route: 042
     Dates: start: 20070208
  3. CETIRIZINE HCL [Concomitant]
     Indication: PRODUCT USED FOR UNKNOWN INDICATION
     Dosage: 5.0 UNK, OTHER(FOUR TIMES)
     Route: 048
     Dates: start: 20070405

REACTIONS (7)
  - WEIGHT BEARING DIFFICULTY [None]
  - DIZZINESS [None]
  - ANXIETY [None]
  - ARTHRALGIA [None]
  - PYREXIA [None]
  - LETHARGY [None]
  - FLUSHING [None]
